FAERS Safety Report 9495777 (Version 1)
Quarter: 2013Q3

REPORT INFORMATION
  Report Type: Report from Study
  Country: US (occurrence: US)
  Receive Date: 20130903
  Receipt Date: 20130903
  Transmission Date: 20140515
  Serious: Yes (Hospitalization, Other)
  Sender: FDA-Public Use
  Company Number: US-ABBOTT-13P-163-1138449-00

PATIENT
  Age: 50 Year
  Sex: Female

DRUGS (10)
  1. HUMIRA [Suspect]
     Indication: CROHN^S DISEASE
     Dosage: LOADING DOSE
     Dates: start: 20130712, end: 20130712
  2. HUMIRA [Suspect]
     Dosage: LOADING DOSE
     Dates: start: 20130726, end: 20130726
  3. HUMIRA [Suspect]
  4. MERCAPTOPURINE [Concomitant]
     Indication: CROHN^S DISEASE
  5. VIT D [Concomitant]
     Indication: PRODUCT USED FOR UNKNOWN INDICATION
  6. HYDROCODONE [Concomitant]
     Indication: PRODUCT USED FOR UNKNOWN INDICATION
     Dosage: 5/5000 MG
  7. CIPRO [Concomitant]
     Indication: CROHN^S DISEASE
  8. BACTRIM [Concomitant]
     Indication: CROHN^S DISEASE
  9. XANAX [Concomitant]
     Indication: PRODUCT USED FOR UNKNOWN INDICATION
     Dosage: IN THE EVENING
  10. NEXIUM [Concomitant]
     Indication: GASTROOESOPHAGEAL REFLUX DISEASE

REACTIONS (3)
  - Fistula [Recovering/Resolving]
  - Proctalgia [Unknown]
  - Abscess [Unknown]
